FAERS Safety Report 5776689-1 (Version None)
Quarter: 2008Q2

REPORT INFORMATION
  Report Type: 
  Country: None (occurrence: None)
  Receive Date: 20080618
  Receipt Date: 20080428
  Transmission Date: 20081010
  Serious: No
  Sender: FDA-Public Use
  Company Number: US-ASTRAZENECA-2008UW04697

PATIENT
  Age: 83 Year
  Sex: Female
  Weight: 65.8 kg

DRUGS (3)
  1. SYMBICORT [Suspect]
     Indication: DYSPNOEA
     Dosage: 160/4.5 UG 2 INHALATIONS TWICE DAILY
     Route: 055
  2. NORVASC [Concomitant]
  3. LIPITOR [Concomitant]

REACTIONS (1)
  - DYSPNOEA [None]
